FAERS Safety Report 22603300 (Version 4)
Quarter: 2024Q1

REPORT INFORMATION
  Report Type: Spontaneous
  Country: JP (occurrence: JP)
  Receive Date: 20230615
  Receipt Date: 20240124
  Transmission Date: 20240410
  Serious: Yes (Death, Life-Threatening, Disabling, Other)
  Sender: FDA-Public Use
  Company Number: JP-CHUGAI-2023020932AA

PATIENT
  Age: 78 Year
  Sex: Female
  Weight: 56 kg

DRUGS (11)
  1. HERCEPTIN [Suspect]
     Active Substance: TRASTUZUMAB
     Indication: Breast cancer
     Dosage: 580 MILLIGRAM, ONCE/3WEEKS
     Route: 065
     Dates: start: 20230313, end: 20230313
  2. HERCEPTIN [Suspect]
     Active Substance: TRASTUZUMAB
     Dosage: 420 MILLIGRAM, ONCE/3WEEKS
     Route: 065
     Dates: start: 20230404, end: 20230516
  3. HERCEPTIN [Suspect]
     Active Substance: TRASTUZUMAB
     Dosage: 380 MILLIGRAM, ONCE/3WEEKS
     Route: 065
     Dates: start: 20230606, end: 20230606
  4. NICORANDIL [Suspect]
     Active Substance: NICORANDIL
     Indication: Product used for unknown indication
     Dosage: 2ML/HR
     Route: 065
     Dates: start: 20230607
  5. NICORANDIL [Suspect]
     Active Substance: NICORANDIL
     Route: 065
     Dates: start: 20230616
  6. LENOGRASTIM [Suspect]
     Active Substance: LENOGRASTIM
     Indication: Febrile neutropenia
     Route: 065
     Dates: start: 20230613
  7. DOCETAXEL [Suspect]
     Active Substance: DOCETAXEL\DOCETAXEL ANHYDROUS
     Indication: Breast cancer
     Dosage: MOST RECENT DOSE: 06/JUN/2023
     Route: 065
     Dates: start: 20230314, end: 20230606
  8. DEXAMETHASONE SODIUM PHOSPHATE [Concomitant]
     Active Substance: DEXAMETHASONE PHOSPHATE\DEXAMETHASONE SODIUM PHOSPHATE
     Dosage: UNK
     Dates: start: 20230314, end: 20230606
  9. DECADRON [Concomitant]
     Active Substance: DEXAMETHASONE
     Dosage: UNK
     Dates: start: 20230522
  10. ALPRAZOLAM [Concomitant]
     Active Substance: ALPRAZOLAM
     Dosage: UNK
     Dates: start: 20230525
  11. MORPHINE HYDROCHLORIDE [Concomitant]
     Active Substance: MORPHINE HYDROCHLORIDE
     Dosage: UNK
     Dates: start: 20230525

REACTIONS (5)
  - Respiratory arrest [Not Recovered/Not Resolved]
  - Cardiac arrest [Recovered/Resolved with Sequelae]
  - Stress cardiomyopathy [Unknown]
  - Disease progression [Fatal]
  - Febrile neutropenia [Recovered/Resolved]

NARRATIVE: CASE EVENT DATE: 20230606
